FAERS Safety Report 20289137 (Version 3)
Quarter: 2022Q3

REPORT INFORMATION
  Report Type: Report from Study
  Country: US (occurrence: None)
  Receive Date: 20220104
  Receipt Date: 20220818
  Transmission Date: 20221027
  Serious: Yes (Death)
  Sender: FDA-Public Use
  Company Number: US-ROCHE-2971095

PATIENT
  Age: 81 Year
  Sex: Male
  Weight: 84 kg

DRUGS (6)
  1. ATEZOLIZUMAB [Suspect]
     Active Substance: ATEZOLIZUMAB
     Indication: Lung adenocarcinoma
     Dosage: TOTAL DOSE ADMINISTERED THIS COURSE WAS 1680 MG D1?ON 12/AUG/2021, LAST DOSE OF ATEZOLIZUMAB WAS ADM
     Route: 041
     Dates: start: 20210812
  2. COBIMETINIB [Suspect]
     Active Substance: COBIMETINIB
     Indication: Lung adenocarcinoma
     Dosage: TOTAL DOSE ADMINISTERED THIS COURSE WAS 60 MG D1-21?ON 20/AUG/2021, LAST DOSE OF COBIMETINIB WAS ADM
     Route: 048
     Dates: start: 20210812
  3. CARBOPLATIN [Concomitant]
     Active Substance: CARBOPLATIN
     Dates: start: 202103, end: 202103
  4. PEMETREXED [Concomitant]
     Active Substance: PEMETREXED
     Dates: start: 202103, end: 202103
  5. PEMETREXED [Concomitant]
     Active Substance: PEMETREXED
     Dates: start: 202106, end: 202107
  6. PEMBROLIZUMAB [Concomitant]
     Active Substance: PEMBROLIZUMAB
     Dates: start: 202106, end: 202107

REACTIONS (1)
  - Disease progression [Fatal]

NARRATIVE: CASE EVENT DATE: 20210823
